FAERS Safety Report 5132938-4 (Version None)
Quarter: 2006Q4

REPORT INFORMATION
  Report Type: 
  Country: None (occurrence: None)
  Receive Date: 20061019
  Receipt Date: 20061019
  Transmission Date: 20070319
  Serious: Yes (Life-Threatening, Hospitalization)
  Sender: FDA-Public Use
  Company Number: None

PATIENT
  Age: 85 Year
  Sex: Male
  Weight: 72.5 kg

DRUGS (13)
  1. HEPARIN [Suspect]
  2. ISOSORBIDE MONONITRATE [Concomitant]
  3. SIMVASTATIN [Concomitant]
  4. NITROGLYCERIN [Concomitant]
  5. CLOPIDOGREL BISULFATE [Concomitant]
  6. ALBUTEROL 90/IPRATROP 18MCG [Concomitant]
  7. FUROSEMIDE [Concomitant]
  8. OMEPRAZOLE [Concomitant]
  9. LISINOPRIL [Concomitant]
  10. LORATADINE [Concomitant]
  11. POTASSIUM CHLORIDE [Concomitant]
  12. CARVEDILOL [Concomitant]
  13. ACETAMINOPHEN [Concomitant]

REACTIONS (1)
  - THROMBOCYTOPENIA [None]
